FAERS Safety Report 4746010-6 (Version None)
Quarter: 2005Q3

REPORT INFORMATION
  Report Type: 
  Country: None (occurrence: None)
  Receive Date: 20050816
  Receipt Date: 20050811
  Transmission Date: 20060218
  Serious: Yes (Hospitalization)
  Sender: FDA-Public Use
  Company Number: PHBS2005US11797

PATIENT
  Age: 1 Day
  Sex: Female
  Weight: 1 kg

DRUGS (5)
  1. CYCLOSPORINE [Suspect]
     Route: 064
  2. LOVENOX [Concomitant]
     Route: 064
  3. ALDOMET [Concomitant]
     Route: 064
  4. ACTIVASE [Concomitant]
     Route: 064
  5. HEPARIN [Concomitant]
     Route: 064

REACTIONS (4)
  - APGAR SCORE LOW [None]
  - DRUG EXPOSURE DURING PREGNANCY [None]
  - FOETAL HEART RATE DECELERATION [None]
  - PREMATURE BABY [None]
